FAERS Safety Report 25933417 (Version 2)
Quarter: 2025Q4

REPORT INFORMATION
  Report Type: Spontaneous
  Country: US (occurrence: US)
  Receive Date: 20251017
  Receipt Date: 20251031
  Transmission Date: 20260117
  Serious: Yes (Life-Threatening, Hospitalization)
  Sender: TEVA
  Company Number: US-TEVA-VS-3382672

PATIENT
  Age: 65 Year
  Sex: Male

DRUGS (4)
  1. HYDROMORPHONE [Suspect]
     Active Substance: HYDROMORPHONE
     Indication: Pain
     Dosage: RECEIVED HYDROMORPHONE PATIENT-CONTROLLED ANALGESIA AT 1MG/HR WITH A 0.5 MG EVERY 15 MINUTE DOSE
     Route: 065
  2. HYDROMORPHONE [Suspect]
     Active Substance: HYDROMORPHONE
     Indication: Pain
     Dosage: RECEIVED LONG-STANDING HYDROMORPHONE INTRATHECAL DRUG DELIVERY SYSTEMS
     Route: 037
     Dates: start: 1994
  3. VANCOMYCIN [Concomitant]
     Active Substance: VANCOMYCIN
     Indication: Device related infection
     Route: 042
  4. FENTANYL [Suspect]
     Active Substance: FENTANYL
     Indication: Pain
     Route: 065

REACTIONS (2)
  - Respiratory depression [Unknown]
  - Respiratory failure [Unknown]
